FAERS Safety Report 18978920 (Version 1)
Quarter: 2021Q1

REPORT INFORMATION
  Report Type: Spontaneous
  Country: CA (occurrence: CA)
  Receive Date: 20210308
  Receipt Date: 20210308
  Transmission Date: 20210420
  Serious: Yes (Hospitalization, Other)
  Sender: FDA-Public Use
  Company Number: CA-CELLTRION INC.-2021CA000921

PATIENT

DRUGS (6)
  1. INFLECTRA [Suspect]
     Active Substance: INFLIXIMAB-DYYB
     Dosage: 10MG/KG Q 0, 2, 6 WEEKS
     Route: 041
     Dates: start: 20210128
  2. ACETAMINOPHEN. [Concomitant]
     Active Substance: ACETAMINOPHEN
     Indication: PREMEDICATION
     Dosage: UNK
  3. DIPHENHYDRAMINE. [Concomitant]
     Active Substance: DIPHENHYDRAMINE
     Indication: PREMEDICATION
     Dosage: UNK
  4. INFLECTRA [Suspect]
     Active Substance: INFLIXIMAB-DYYB
     Dosage: 700 MG , WEEK 8 WEEK (PATIENT IS YET TO COMPLETE INDUCTION PHASE AND IS PRESCRIBED 700MG EVERY 8 WEE
     Route: 042
  5. INFLECTRA [Suspect]
     Active Substance: INFLIXIMAB-DYYB
     Dosage: 10MG/KG Q 0, 2, 6 WEEKS
     Route: 041
     Dates: start: 20210225
  6. INFLECTRA [Suspect]
     Active Substance: INFLIXIMAB-DYYB
     Indication: CROHN^S DISEASE
     Dosage: 10MG/KG Q 0, 2, 6 WEEKSPATIENT HAD  Q 0 WEEK DOSE IN HOSPITAL ON 14JAN2021
     Route: 041
     Dates: start: 20210114

REACTIONS (2)
  - Off label use [Unknown]
  - Pancreatitis [Unknown]

NARRATIVE: CASE EVENT DATE: 20210114
